FAERS Safety Report 9423648 (Version 2)
Quarter: 2013Q3

REPORT INFORMATION
  Report Type: Report from Study
  Country: CA (occurrence: CA)
  Receive Date: 20130726
  Receipt Date: 20130813
  Transmission Date: 20140515
  Serious: Yes (Hospitalization, Other)
  Sender: FDA-Public Use
  Company Number: CA-ROCHE-1175137

PATIENT
  Age: 47 Year
  Sex: Female
  Weight: 83.9 kg

DRUGS (13)
  1. RITUXIMAB [Suspect]
     Indication: GRANULOMATOSIS WITH POLYANGIITIS
     Route: 042
     Dates: start: 20110922
  2. RITUXIMAB [Suspect]
     Route: 042
     Dates: start: 20130220
  3. RITUXIMAB [Suspect]
     Route: 042
     Dates: start: 20130306
  4. RITUXIMAB [Suspect]
     Route: 065
     Dates: start: 20130314
  5. PREDNISONE [Concomitant]
  6. ACTONEL [Concomitant]
  7. VITAMIN B12 [Concomitant]
  8. ELTROXIN [Concomitant]
  9. SULFATRIM [Concomitant]
  10. FERROUS GLUCONATE [Concomitant]
  11. DIPHENHYDRAMINE HCL [Concomitant]
     Indication: PREMEDICATION
     Route: 048
     Dates: start: 20110922
  12. ACETAMINOPHEN [Concomitant]
     Indication: PREMEDICATION
     Route: 048
     Dates: start: 20110922
  13. METHYLPREDNISOLONE [Concomitant]
     Indication: PREMEDICATION
     Route: 042
     Dates: start: 20120922

REACTIONS (7)
  - Lung infection [Recovering/Resolving]
  - Dyspnoea [Not Recovered/Not Resolved]
  - Tracheal stenosis [Not Recovered/Not Resolved]
  - Arthritis [Not Recovered/Not Resolved]
  - Ocular hyperaemia [Not Recovered/Not Resolved]
  - Granulomatosis with polyangiitis [Not Recovered/Not Resolved]
  - Eye pain [Not Recovered/Not Resolved]
